FAERS Safety Report 8972453 (Version 1)
Quarter: 2012Q4

REPORT INFORMATION
  Report Type: Spontaneous
  Country: US (occurrence: None)
  Receive Date: 20121217
  Receipt Date: 20121217
  Transmission Date: 20130627
  Serious: Yes (Death)
  Sender: FDA-Public Use
  Company Number: None

PATIENT
  Age: 64 Year
  Sex: Female

DRUGS (4)
  1. AVASTIN [Suspect]
     Indication: DIABETIC RETINOPATHY
     Route: 031
     Dates: start: 20101230, end: 20120531
  2. AVASTIN [Suspect]
     Indication: MACULAR EDEMA
     Route: 031
     Dates: start: 20101230, end: 20120531
  3. LUCENTIS [Suspect]
     Indication: DIABETIC RETINOPATHY
     Dates: start: 20120109, end: 20120823
  4. LUCENTIS [Suspect]
     Indication: MACULAR EDEMA
     Dates: start: 20120109, end: 20120823

REACTIONS (1)
  - Death [None]
